FAERS Safety Report 12777531 (Version 1)
Quarter: 2016Q3

REPORT INFORMATION
  Report Type: Spontaneous
  Country: US (occurrence: US)
  Receive Date: 20160924
  Receipt Date: 20160924
  Transmission Date: 20161109
  Serious: No
  Sender: FDA-Public Use
  Company Number: US-TEVA-684668USA

PATIENT
  Age: 66 Year
  Sex: Female
  Weight: 47.67 kg

DRUGS (1)
  1. CLONAZEPAM. [Suspect]
     Active Substance: CLONAZEPAM
     Indication: NECK PAIN
     Dates: start: 201607

REACTIONS (4)
  - Underdose [Unknown]
  - Drug withdrawal syndrome [Unknown]
  - Pain in jaw [Not Recovered/Not Resolved]
  - Toothache [Not Recovered/Not Resolved]

NARRATIVE: CASE EVENT DATE: 201607
